FAERS Safety Report 11774484 (Version 4)
Quarter: 2016Q1

REPORT INFORMATION
  Report Type: Report from Study
  Country: JP (occurrence: JP)
  Receive Date: 20151124
  Receipt Date: 20160216
  Transmission Date: 20160525
  Serious: Yes (Other)
  Sender: FDA-Public Use
  Company Number: JP-PFIZER INC-2015406348

PATIENT
  Age: 95 Year
  Sex: Female

DRUGS (9)
  1. TAKEPRON [Suspect]
     Active Substance: LANSOPRAZOLE
     Dosage: UNK
  2. FLUITRAN [Suspect]
     Active Substance: TRICHLORMETHIAZIDE
     Dosage: UNK
  3. NAUZELIN [Suspect]
     Active Substance: DOMPERIDONE
     Dosage: UNK
  4. TELEMINSOFT [Suspect]
     Active Substance: BISACODYL
     Dosage: UNK
  5. OLMESARTAN [Suspect]
     Active Substance: OLMESARTAN
     Dosage: UNK
  6. LOXONIN [Suspect]
     Active Substance: LOXOPROFEN SODIUM
     Dosage: UNK
  7. LENDORMIN [Suspect]
     Active Substance: BROTIZOLAM
     Dosage: UNK
  8. AMLODIN [Suspect]
     Active Substance: AMLODIPINE BESYLATE
     Indication: HYPERTENSION
     Dosage: UNK
  9. ONEALFA [Suspect]
     Active Substance: ALFACALCIDOL
     Dosage: UNK

REACTIONS (3)
  - Loss of consciousness [Recovered/Resolved]
  - Blood pressure decreased [Recovered/Resolved]
  - Prescribed overdose [None]

NARRATIVE: CASE EVENT DATE: 20121207
